FAERS Safety Report 12884814 (Version 6)
Quarter: 2017Q1

REPORT INFORMATION
  Report Type: Spontaneous
  Country: US (occurrence: US)
  Receive Date: 20161026
  Receipt Date: 20170209
  Transmission Date: 20170428
  Serious: Yes (Other)
  Sender: FDA-Public Use
  Company Number: PHEH2016US027630

PATIENT
  Sex: Female
  Weight: 104.7 kg

DRUGS (2)
  1. LENVATINIB [Suspect]
     Active Substance: LENVATINIB
     Indication: RENAL CANCER
     Dosage: 18 MG, QD
     Route: 048
     Dates: start: 20161014
  2. AFINITOR [Suspect]
     Active Substance: EVEROLIMUS
     Indication: RENAL NEOPLASM
     Dosage: 5 MG, QD, (2 WEEKS ON 1 WEEK OFF)
     Route: 048

REACTIONS (15)
  - Dyspnoea [Unknown]
  - Abdominal pain upper [Recovered/Resolved]
  - Joint injury [Unknown]
  - Vomiting [Unknown]
  - Diarrhoea [Not Recovered/Not Resolved]
  - Cough [Unknown]
  - Loss of consciousness [Unknown]
  - Dermatitis infected [Unknown]
  - Dizziness [Unknown]
  - Arthralgia [Unknown]
  - Rash [Not Recovered/Not Resolved]
  - Haemoglobin decreased [Unknown]
  - Malaise [Unknown]
  - Nausea [Unknown]
  - Viral infection [Unknown]
